FAERS Safety Report 7769999-X (Version None)
Quarter: 2011Q3

REPORT INFORMATION
  Report Type: 
  Country: None (occurrence: None)
  Receive Date: 20110922
  Receipt Date: 20100830
  Transmission Date: 20111222
  Serious: No
  Sender: FDA-Public Use
  Company Number: US-ASTRAZENECA-2007UW27630

PATIENT
  Age: 41 Year
  Sex: Female
  Weight: 81.6 kg

DRUGS (15)
  1. SEROQUEL [Suspect]
     Indication: ANXIETY
     Route: 048
     Dates: start: 20010601, end: 20060701
  2. SEROQUEL [Suspect]
     Dosage: 100 TO 300 MG
     Route: 048
     Dates: start: 20050627, end: 20050726
  3. GEODON [Concomitant]
     Dates: start: 20090101
  4. SEROQUEL [Suspect]
     Indication: BIPOLAR DISORDER
     Route: 048
     Dates: start: 20010601, end: 20060701
  5. SEROQUEL [Suspect]
     Dosage: 300 MG X FOUR TABLET QHS
     Route: 048
     Dates: start: 20060315
  6. ZYPREXA [Concomitant]
     Indication: MENTAL DISORDER
  7. ABILIFY [Concomitant]
  8. SEROQUEL [Suspect]
     Dosage: 100 TO 300 MG
     Route: 048
     Dates: start: 20050627, end: 20050726
  9. SEROQUEL [Suspect]
     Indication: SCHIZOPHRENIA
     Route: 048
     Dates: start: 20010601, end: 20060701
  10. SEROQUEL [Suspect]
     Dosage: 300 MG X FOUR TABLET QHS
     Route: 048
     Dates: start: 20060315
  11. SEROQUEL [Suspect]
     Indication: DEPRESSION
     Route: 048
     Dates: start: 20010601, end: 20060701
  12. SEROQUEL [Suspect]
     Dosage: 100 TO 300 MG
     Route: 048
     Dates: start: 20050627, end: 20050726
  13. SEROQUEL [Suspect]
     Dosage: 100 TO 300 MG
     Route: 048
     Dates: start: 20050627, end: 20050726
  14. SEROQUEL [Suspect]
     Dosage: 300 MG X FOUR TABLET QHS
     Route: 048
     Dates: start: 20060315
  15. SEROQUEL [Suspect]
     Dosage: 300 MG X FOUR TABLET QHS
     Route: 048
     Dates: start: 20060315

REACTIONS (4)
  - WEIGHT INCREASED [None]
  - TYPE 2 DIABETES MELLITUS [None]
  - DIABETIC COMPLICATION [None]
  - DIABETES MELLITUS [None]
